FAERS Safety Report 9115929 (Version 3)
Quarter: 2013Q2

REPORT INFORMATION
  Report Type: Spontaneous
  Country: US (occurrence: US)
  Receive Date: 20130225
  Receipt Date: 20130522
  Transmission Date: 20140414
  Serious: Yes (Other)
  Sender: FDA-Public Use
  Company Number: US-PFIZER INC-2013066984

PATIENT
  Age: 61 Year
  Sex: Male

DRUGS (13)
  1. LIPITOR [Suspect]
     Dosage: 40 MG, QHS
  2. NORVASC [Suspect]
     Dosage: 5 MG, 1X/DAY
  3. GLUCOTROL [Suspect]
     Dosage: 10 MG, 2X/DAY
  4. ZOLOFT [Suspect]
     Dosage: 250 MG, 2X/DAY
  5. LORTAB [Concomitant]
     Dosage: 10 MG, 2X/DAY
  6. DILTIAZEM [Concomitant]
     Dosage: 90 MG, 2X/DAY
  7. ACCUPRIL [Concomitant]
     Dosage: 40 MG, 1X/DAY
  8. JANUVIA [Concomitant]
     Dosage: 100 MG, 1X/DAY
  9. NEXIUM [Concomitant]
     Dosage: 40 MG, 1X/DAY
  10. ASA [Concomitant]
     Dosage: 81 MG, 1X/DAY
  11. INDAPAMIDE [Concomitant]
     Dosage: 2.5 MG, 1X/DAY
  12. ULORIC [Concomitant]
     Dosage: 40 MG, 1X/DAY
  13. ZANTAC [Concomitant]
     Dosage: UNK

REACTIONS (1)
  - Hypoacusis [Unknown]
